FAERS Safety Report 22093525 (Version 1)
Quarter: 2023Q1

REPORT INFORMATION
  Report Type: Spontaneous
  Country: None (occurrence: GB)
  Receive Date: 20230314
  Receipt Date: 20230314
  Transmission Date: 20230418
  Serious: Yes (Life-Threatening, Other)
  Sender: FDA-Public Use
  Company Number: GB-Breckenridge Pharmaceutical, Inc.-2139038

PATIENT
  Sex: Female

DRUGS (18)
  1. OMEPRAZOLE [Suspect]
     Active Substance: OMEPRAZOLE
  2. ASPIRIN [Concomitant]
     Active Substance: ASPIRIN
  3. BISOPROLOL. [Concomitant]
     Active Substance: BISOPROLOL FUMARATE
  4. Carmellose eye drops 0.5% [Concomitant]
  5. DULOXETINE [Concomitant]
     Active Substance: DULOXETINE
  6. FOLIC ACID [Concomitant]
     Active Substance: FOLIC ACID
  7. SCOPOLAMINE HYDROBROMIDE [Concomitant]
     Active Substance: SCOPOLAMINE HYDROBROMIDE
  8. umeclidinium bromide inhalation [Concomitant]
  9. LEVOTHYROXINE [Concomitant]
     Active Substance: LEVOTHYROXINE
  10. POLYETHYLENE GLYCOLS [Concomitant]
     Active Substance: POLYETHYLENE GLYCOLS
  11. METFORMIN [Concomitant]
     Active Substance: METFORMIN HYDROCHLORIDE
  12. PREGABALIN [Concomitant]
     Active Substance: PREGABALIN
     Route: 048
  13. RAMIPRIL [Concomitant]
     Active Substance: RAMIPRIL
  14. FLUTICASONE [Concomitant]
     Active Substance: FLUTICASONE
  15. Vilanterol trifenatate Inhalation [Concomitant]
  16. Salbutamol Sulfate Inhalation [Concomitant]
  17. TICAGRELOR [Concomitant]
     Active Substance: TICAGRELOR
  18. ATORVASTATIN CALCIUM [Concomitant]
     Active Substance: ATORVASTATIN CALCIUM

REACTIONS (5)
  - Myocardial infarction [Unknown]
  - Progressive multiple sclerosis [Unknown]
  - High density lipoprotein decreased [Unknown]
  - Red cell distribution width increased [Unknown]
  - Blood triglycerides increased [Unknown]
